FAERS Safety Report 4845600-X (Version None)
Quarter: 2005Q4

REPORT INFORMATION
  Report Type: 
  Country: None (occurrence: None)
  Receive Date: 20051201
  Receipt Date: 20051121
  Transmission Date: 20060501
  Serious: Yes (Hospitalization)
  Sender: FDA-Public Use
  Company Number: S05-USA-03963-01

PATIENT
  Age: 17 Year
  Sex: Female

DRUGS (3)
  1. LEXAPRO [Suspect]
     Indication: MAJOR DEPRESSION
     Dosage: 20 MG QD PO
     Route: 048
     Dates: start: 20050416, end: 20050424
  2. LEXAPRO [Suspect]
     Indication: MAJOR DEPRESSION
     Dosage: 10 MG QD PO
     Route: 048
     Dates: start: 20050411, end: 20050415
  3. LORAZEPAM [Concomitant]

REACTIONS (2)
  - CONVULSION [None]
  - SYNCOPE [None]
